FAERS Safety Report 4318625-0 (Version None)
Quarter: 2004Q1

REPORT INFORMATION
  Report Type: 
  Country: None (occurrence: None)
  Receive Date: 20040315
  Receipt Date: 20040315
  Transmission Date: 20041129
  Serious: Yes (Other)
  Sender: FDA-Public Use
  Company Number: None

PATIENT
  Age: 19 Year
  Sex: Female
  Weight: 47.6277 kg

DRUGS (1)
  1. LACTATED RINGER'S [Suspect]
     Dosage: IV INFUSION
     Route: 042
     Dates: start: 20040221

REACTIONS (1)
  - CHEST PAIN [None]
